FAERS Safety Report 17796591 (Version 1)
Quarter: 2020Q2

REPORT INFORMATION
  Report Type: Report from Study
  Country: US (occurrence: US)
  Receive Date: 20200518
  Receipt Date: 20200518
  Transmission Date: 20200714
  Serious: Yes (Hospitalization)
  Sender: FDA-Public Use
  Company Number: US-BIOGEN-2020BI00874354

PATIENT
  Sex: Female

DRUGS (1)
  1. TECFIDERA [Suspect]
     Active Substance: DIMETHYL FUMARATE
     Indication: MULTIPLE SCLEROSIS
     Route: 048
     Dates: start: 20181025

REACTIONS (6)
  - Fatigue [Unknown]
  - Influenza [Unknown]
  - Muscular weakness [Unknown]
  - Gait disturbance [Unknown]
  - Fall [Recovered/Resolved]
  - Cough [Unknown]
